FAERS Safety Report 9370976 (Version 3)
Quarter: 2013Q4

REPORT INFORMATION
  Report Type: Spontaneous
  Country: JP (occurrence: JP)
  Receive Date: 20130627
  Receipt Date: 20131031
  Transmission Date: 20140711
  Serious: Yes (Life-Threatening, Hospitalization)
  Sender: FDA-Public Use
  Company Number: JP-ROCHE-1241683

PATIENT
  Age: 69 Year
  Sex: Male

DRUGS (1)
  1. ROCEPHIN [Suspect]
     Indication: INJURY
     Dosage: MOST RECENT THERAPY: 06/MAR/2007
     Route: 041
     Dates: start: 20070306

REACTIONS (2)
  - Hepatitis fulminant [Recovered/Resolved]
  - Pancreatitis acute [Recovered/Resolved]
